FAERS Safety Report 10167075 (Version 4)
Quarter: 2015Q1

REPORT INFORMATION
  Report Type: Spontaneous
  Country: US (occurrence: US)
  Receive Date: 20140512
  Receipt Date: 20150313
  Transmission Date: 20150720
  Serious: Yes (Hospitalization, Other)
  Sender: FDA-Public Use
  Company Number: US-PFIZER INC-2014126026

PATIENT
  Age: 50 Year
  Sex: Female
  Weight: 96 kg

DRUGS (4)
  1. LYRICA [Suspect]
     Active Substance: PREGABALIN
     Indication: HYPOAESTHESIA
  2. LYRICA [Suspect]
     Active Substance: PREGABALIN
     Indication: PAIN
     Dosage: 75 MG, 3X/DAY
     Route: 048
     Dates: start: 2004
  3. LISINOPRIL /HYDROCHLOROTHIAZIDE [Concomitant]
     Indication: HYPERTENSION
     Dosage: 20/12.5 MG, UNK
     Route: 048
     Dates: start: 2002
  4. LYRICA [Suspect]
     Active Substance: PREGABALIN
     Indication: PARAESTHESIA

REACTIONS (9)
  - Crying [Not Recovered/Not Resolved]
  - Neck pain [Unknown]
  - Mobility decreased [Recovered/Resolved]
  - Disease progression [Not Recovered/Not Resolved]
  - Drug ineffective [Not Recovered/Not Resolved]
  - Dyspnoea [Unknown]
  - Activities of daily living impaired [Recovered/Resolved]
  - Dyskinesia [Unknown]
  - Cervical spinal stenosis [Not Recovered/Not Resolved]

NARRATIVE: CASE EVENT DATE: 20080602
